FAERS Safety Report 9522280 (Version 3)
Quarter: 2013Q4

REPORT INFORMATION
  Report Type: Spontaneous
  Country: JP (occurrence: JP)
  Receive Date: 20130913
  Receipt Date: 20131009
  Transmission Date: 20140711
  Serious: No
  Sender: FDA-Public Use
  Company Number: PHHY2013JP096094

PATIENT
  Age: 74 Year
  Sex: Female

DRUGS (1)
  1. LAMISIL [Suspect]
     Indication: ONYCHOMYCOSIS
     Dosage: UNK UKN, UNK
     Route: 048
     Dates: start: 20130717, end: 20130825

REACTIONS (2)
  - Asthma [Unknown]
  - Liver disorder [Not Recovered/Not Resolved]
